FAERS Safety Report 9902409 (Version 3)
Quarter: 2015Q1

REPORT INFORMATION
  Report Type: Spontaneous
  Country: FR (occurrence: FR)
  Receive Date: 20140217
  Receipt Date: 20150304
  Transmission Date: 20150721
  Serious: Yes (Hospitalization, Other)
  Sender: FDA-Public Use
  Company Number: FR-ELI_LILLY_AND_COMPANY-FR201402004271

PATIENT
  Age: 60 Year
  Sex: Female

DRUGS (3)
  1. PEMETREXED [Suspect]
     Active Substance: PEMETREXED
     Indication: LARGE CELL LUNG CANCER
     Dosage: 500 MG, OTHER
     Route: 065
     Dates: start: 200903, end: 200907
  2. CISPLATIN. [Concomitant]
     Active Substance: CISPLATIN
     Indication: LARGE CELL LUNG CANCER
     Dosage: 80 MG/M2, OTHER
     Route: 065
     Dates: start: 200903, end: 200905
  3. FOLINIC ACID [Concomitant]
     Active Substance: LEUCOVORIN
     Indication: SUPPLEMENTATION THERAPY
     Dosage: UNK
     Route: 065
     Dates: start: 200903, end: 200905

REACTIONS (5)
  - Acute kidney injury [Unknown]
  - Kidney fibrosis [Unknown]
  - Chronic kidney disease [Not Recovered/Not Resolved]
  - Renal tubular necrosis [Unknown]
  - Face oedema [Unknown]

NARRATIVE: CASE EVENT DATE: 2009
